FAERS Safety Report 25525267 (Version 2)
Quarter: 2025Q3

REPORT INFORMATION
  Report Type: Spontaneous
  Country: US (occurrence: US)
  Receive Date: 20250707
  Receipt Date: 20250711
  Transmission Date: 20251021
  Serious: No
  Sender: SANOFI AVENTIS
  Company Number: US-SA-2025SA189905

PATIENT
  Age: 68 Year
  Sex: Female
  Weight: 82.55 kg

DRUGS (20)
  1. DUPIXENT [Suspect]
     Active Substance: DUPILUMAB
     Indication: Hypersensitivity
     Dosage: 300 MG, QOW
     Dates: start: 2025
  2. DUPIXENT [Suspect]
     Active Substance: DUPILUMAB
     Indication: Asthma
  3. CELECOXIB [Concomitant]
     Active Substance: CELECOXIB
  4. HYDROCHLOROTHIAZIDE [Concomitant]
     Active Substance: HYDROCHLOROTHIAZIDE
  5. ZAFIRLUKAST [Concomitant]
     Active Substance: ZAFIRLUKAST
  6. PRAVASTATIN [Concomitant]
     Active Substance: PRAVASTATIN
  7. GABAPENTIN [Concomitant]
     Active Substance: GABAPENTIN
  8. VITAMIN D2 [Concomitant]
     Active Substance: ERGOCALCIFEROL
  9. CITALOPRAM [Concomitant]
     Active Substance: CITALOPRAM
  10. BAYER ASPIRIN [Concomitant]
     Active Substance: ASPIRIN
  11. DIETARY SUPPLEMENT\HERBALS\MILK THISTLE [Concomitant]
     Active Substance: MILK THISTLE
  12. VITAMINS [Concomitant]
     Active Substance: VITAMINS
  13. FISH OIL [Concomitant]
     Active Substance: FISH OIL
  14. CALCIUM [Concomitant]
     Active Substance: CALCIUM
  15. RYBELSUS [Concomitant]
     Active Substance: SEMAGLUTIDE
  16. OXYBUTYNIN [Concomitant]
     Active Substance: OXYBUTYNIN
  17. ZOLPIDEM [Concomitant]
     Active Substance: ZOLPIDEM TARTRATE
  18. LOSARTAN [Concomitant]
     Active Substance: LOSARTAN
  19. PROBIOTICS NOS [Concomitant]
     Active Substance: PROBIOTICS NOS
  20. ASPIRIN [Concomitant]
     Active Substance: ASPIRIN

REACTIONS (4)
  - Injection site swelling [Recovered/Resolved]
  - Accidental exposure to product [Unknown]
  - Exposure via skin contact [Unknown]
  - Product use in unapproved indication [Unknown]

NARRATIVE: CASE EVENT DATE: 20250101
